FAERS Safety Report 10157793 (Version 3)
Quarter: 2014Q2

REPORT INFORMATION
  Report Type: Report from Study
  Country: JP (occurrence: JP)
  Receive Date: 20140507
  Receipt Date: 20140523
  Transmission Date: 20141212
  Serious: Yes (Hospitalization)
  Sender: FDA-Public Use
  Company Number: JP-JNJFOC-20140305434

PATIENT
  Age: 71 Year
  Sex: Male
  Weight: 65 kg

DRUGS (55)
  1. FERRUM [Concomitant]
     Indication: COLITIS ULCERATIVE
     Route: 048
     Dates: end: 20140107
  2. FERRUM [Concomitant]
     Indication: COLITIS ULCERATIVE
     Route: 048
     Dates: start: 20140312, end: 20140423
  3. BAYASPIRIN [Concomitant]
     Indication: ISCHAEMIC HEART DISEASE PROPHYLAXIS
     Route: 048
     Dates: start: 2001
  4. UNISIA [Concomitant]
     Route: 048
     Dates: end: 20140123
  5. CRESTOR [Concomitant]
     Indication: HYPERLIPIDAEMIA
     Route: 048
     Dates: start: 20100511
  6. AMLODIPINE [Concomitant]
     Indication: HYPERTENSION
     Route: 048
     Dates: start: 20140125
  7. AMLODIPINE [Concomitant]
     Indication: HYPERTENSION
     Route: 048
     Dates: start: 20140124, end: 20140124
  8. OLMETEC [Concomitant]
     Indication: HYPERTENSION
     Route: 048
     Dates: start: 20140125
  9. LOXONIN [Concomitant]
     Route: 048
     Dates: start: 20131223, end: 20131225
  10. XYLESTESIN-A [Concomitant]
     Route: 061
     Dates: start: 20131224, end: 20131228
  11. CALBLOCK [Concomitant]
     Route: 048
     Dates: start: 20131225, end: 20131225
  12. NON-PYRINE COLD PREPARATION [Concomitant]
     Indication: NASOPHARYNGITIS
     Route: 048
     Dates: start: 20140124, end: 20140301
  13. NON-PYRINE COLD PREPARATION [Concomitant]
     Indication: NASOPHARYNGITIS
     Route: 048
     Dates: start: 20140308, end: 20140312
  14. BFLUID [Concomitant]
     Indication: TRANSFUSION
     Route: 041
     Dates: start: 20140308, end: 20140318
  15. LACTEC-D [Concomitant]
     Indication: TRANSFUSION
     Route: 041
     Dates: start: 20140308, end: 20140318
  16. VITAMEDIN [Concomitant]
     Indication: TRANSFUSION
     Route: 041
     Dates: start: 20140308, end: 20140318
  17. POSTERISAN F [Concomitant]
     Route: 054
     Dates: start: 20140314, end: 20140326
  18. POSTERISAN F [Concomitant]
     Route: 054
     Dates: start: 20140327, end: 20140330
  19. POSTERISAN F [Concomitant]
     Route: 054
     Dates: start: 20140331, end: 20140401
  20. NAFAMOSTAT [Concomitant]
     Indication: ANTICOAGULANT THERAPY
     Route: 041
     Dates: start: 20140310, end: 20140331
  21. LACTEC [Concomitant]
     Indication: COLONOSCOPY
     Route: 041
     Dates: start: 20131219, end: 20131219
  22. LACTEC [Concomitant]
     Indication: COLONOSCOPY
     Route: 041
     Dates: start: 20140131, end: 20140131
  23. OPYSTAN [Concomitant]
     Route: 042
     Dates: start: 20131219, end: 20131219
  24. OPYSTAN [Concomitant]
     Route: 042
     Dates: start: 20140325, end: 20140325
  25. OPYSTAN [Concomitant]
     Route: 042
     Dates: start: 20140306, end: 20140306
  26. KENEI G (GLYCERIN) [Concomitant]
     Indication: COLONOSCOPY
     Route: 054
     Dates: start: 20140306, end: 20140306
  27. KENEI G (GLYCERIN) [Concomitant]
     Indication: COLONOSCOPY
     Route: 054
     Dates: start: 20140131, end: 20140131
  28. KENEI G (GLYCERIN) [Concomitant]
     Indication: COLONOSCOPY
     Route: 054
     Dates: start: 20131219, end: 20131219
  29. NIZORAL [Concomitant]
     Route: 061
     Dates: start: 20140401
  30. BORRAZA-G [Concomitant]
     Route: 054
     Dates: start: 20140401, end: 20140421
  31. CIRCANETTEN [Concomitant]
     Route: 048
     Dates: start: 20140401, end: 20140421
  32. MOHRUS TAPE [Concomitant]
     Route: 062
     Dates: start: 20140311, end: 20140314
  33. TERBINAFINE HYDROCHLORIDE [Concomitant]
     Route: 061
     Dates: end: 20140331
  34. INDOMETACIN [Concomitant]
     Route: 061
  35. ASACOL [Concomitant]
     Indication: COLITIS ULCERATIVE
     Route: 048
     Dates: start: 20121121
  36. IMURAN [Concomitant]
     Indication: COLITIS ULCERATIVE
     Route: 048
     Dates: start: 20120628, end: 20140408
  37. BIO-THREE [Concomitant]
     Indication: COLITIS ULCERATIVE
     Route: 048
     Dates: start: 20120606
  38. TAKEPRON [Concomitant]
     Indication: GASTRITIS PROPHYLAXIS
     Route: 048
     Dates: start: 20120725
  39. FLOMOX [Concomitant]
     Route: 048
     Dates: start: 20140423, end: 20140426
  40. PL GRANULE [Concomitant]
     Route: 048
     Dates: start: 20140417, end: 20140430
  41. ZOVIRAX [Concomitant]
     Indication: OPHTHALMIC HERPES SIMPLEX
     Route: 047
     Dates: start: 20140430, end: 20140514
  42. LANSOPRAZOLE [Concomitant]
     Indication: GASTROINTESTINAL DISORDER THERAPY
     Route: 048
     Dates: start: 20140409
  43. MEIACT [Concomitant]
     Route: 048
     Dates: start: 20140426, end: 20140429
  44. ASVERIN [Concomitant]
     Route: 048
     Dates: start: 20140426, end: 20140429
  45. CARBOCISTEINE [Concomitant]
     Route: 065
     Dates: start: 20140426, end: 20140429
  46. BUSCOPAN [Concomitant]
     Route: 048
     Dates: start: 20140503, end: 20140503
  47. FELBINAC [Concomitant]
     Route: 062
     Dates: start: 20140505, end: 20140509
  48. GOLIMUMAB [Suspect]
     Indication: COLITIS ULCERATIVE
     Route: 058
     Dates: start: 20140205, end: 20140205
  49. PROGRAF [Suspect]
     Indication: COLITIS ULCERATIVE
     Route: 048
     Dates: start: 20140409, end: 20140413
  50. PROGRAF [Suspect]
     Indication: COLITIS ULCERATIVE
     Route: 048
     Dates: start: 20140502
  51. PROGRAF [Suspect]
     Indication: COLITIS ULCERATIVE
     Route: 048
     Dates: start: 20140401, end: 20140408
  52. PROGRAF [Suspect]
     Indication: COLITIS ULCERATIVE
     Route: 048
     Dates: start: 20140329, end: 20140401
  53. PROGRAF [Suspect]
     Indication: COLITIS ULCERATIVE
     Route: 048
     Dates: start: 20140326, end: 20140328
  54. PROGRAF [Suspect]
     Indication: COLITIS ULCERATIVE
     Route: 048
     Dates: start: 20140414, end: 20140502
  55. TAKEPRON [Concomitant]
     Indication: GASTRITIS PROPHYLAXIS
     Route: 048
     Dates: end: 20120408

REACTIONS (2)
  - Herpes zoster [Recovered/Resolved]
  - Colitis ulcerative [Recovered/Resolved]
